FAERS Safety Report 4314433-5 (Version None)
Quarter: 2004Q1

REPORT INFORMATION
  Report Type: 
  Country: None (occurrence: None)
  Receive Date: 20040308
  Receipt Date: 20040223
  Transmission Date: 20041129
  Serious: Yes (Other)
  Sender: FDA-Public Use
  Company Number: 234245

PATIENT
  Age: 64 Year
  Sex: Male

DRUGS (4)
  1. NORDITROPIN [Suspect]
     Indication: GROWTH HORMONE DEFICIENCY
     Dosage: 0.1 MG, QD, SUBCUTANEOUS
     Route: 058
     Dates: start: 20030324, end: 20030720
  2. DOSTINEX [Concomitant]
  3. ELTROXIN ^GLAXO^ (LEVOTHYROXINE SODIUM) [Concomitant]
  4. TESTOVIRON (TESTOSTERONE ENANTATE) [Concomitant]

REACTIONS (4)
  - ADENOMA BENIGN [None]
  - MUSCLE CRAMP [None]
  - PROLACTINOMA [None]
  - TREMOR [None]
